FAERS Safety Report 20641422 (Version 3)
Quarter: 2022Q2

REPORT INFORMATION
  Report Type: Spontaneous
  Country: US (occurrence: US)
  Receive Date: 20220328
  Receipt Date: 20220602
  Transmission Date: 20220721
  Serious: Yes (Hospitalization)
  Sender: FDA-Public Use
  Company Number: US-BIOGEN-2022BI01106394

PATIENT
  Sex: Female

DRUGS (5)
  1. TYSABRI [Suspect]
     Active Substance: NATALIZUMAB
     Indication: Multiple sclerosis
     Route: 065
     Dates: start: 20200221
  2. TYSABRI [Suspect]
     Active Substance: NATALIZUMAB
     Dosage: EVERY 28 DAYS
     Route: 065
     Dates: start: 201902
  3. calcium 500 [Concomitant]
     Indication: Product used for unknown indication
     Route: 048
  4. VITAMIN B12 [Concomitant]
     Active Substance: CYANOCOBALAMIN
     Indication: Product used for unknown indication
     Route: 048
  5. Nortryptyline [Concomitant]
     Indication: Product used for unknown indication
     Dosage: 4 TAB IN AM 5 TAB IN PM
     Route: 048

REACTIONS (3)
  - Seizure [Recovered/Resolved]
  - Therapeutic response shortened [Unknown]
  - Fatigue [Unknown]

NARRATIVE: CASE EVENT DATE: 20210101
